FAERS Safety Report 7047517-1 (Version None)
Quarter: 2010Q4

REPORT INFORMATION
  Report Type: 
  Country: None (occurrence: None)
  Receive Date: 20101015
  Receipt Date: 20101004
  Transmission Date: 20110411
  Serious: Yes (Hospitalization, Other)
  Sender: FDA-Public Use
  Company Number: US-PFIZER INC-2010096537

PATIENT
  Age: 53 Year
  Sex: Female
  Weight: 83.914 kg

DRUGS (2)
  1. LYRICA [Suspect]
     Dosage: 75 MG, 3X/DAY
     Dates: start: 20100202, end: 20100701
  2. LISINOPRIL [Concomitant]
     Indication: BLOOD PRESSURE
     Dosage: UNK
     Dates: end: 20100701

REACTIONS (3)
  - DRUG HYPERSENSITIVITY [None]
  - INCOHERENT [None]
  - SWOLLEN TONGUE [None]
